FAERS Safety Report 7930945-7 (Version None)
Quarter: 2011Q4

REPORT INFORMATION
  Report Type: 
  Country: None (occurrence: None)
  Receive Date: 20111121
  Receipt Date: 20111118
  Transmission Date: 20120403
  Serious: No
  Sender: FDA-Public Use
  Company Number: US-PFIZER INC-2011283375

PATIENT
  Sex: Male
  Weight: 59 kg

DRUGS (1)
  1. NEURONTIN [Suspect]
     Indication: PERIPHERAL NERVE INJURY
     Dosage: 600 MG, 2X/DAY
     Dates: start: 20110901, end: 20110101

REACTIONS (3)
  - NAUSEA [None]
  - CONSTIPATION [None]
  - DIZZINESS [None]
